FAERS Safety Report 24792298 (Version 1)
Quarter: 2024Q4

REPORT INFORMATION
  Report Type: Report from Study
  Country: US (occurrence: US)
  Receive Date: 20241231
  Receipt Date: 20241231
  Transmission Date: 20250115
  Serious: Yes (Hospitalization, Other)
  Sender: TAKEDA
  Company Number: US-TAKEDA-2024TUS128360

PATIENT
  Age: 43 Year
  Sex: Female

DRUGS (7)
  1. TEDUGLUTIDE [Suspect]
     Active Substance: TEDUGLUTIDE
     Indication: Short-bowel syndrome
     Dosage: 2.6 MILLIGRAM, QD
     Dates: start: 201309, end: 20151015
  2. TEDUGLUTIDE [Suspect]
     Active Substance: TEDUGLUTIDE
     Dosage: 2.6 MILLIGRAM, 5/WEEK
     Dates: start: 20151016, end: 20151026
  3. TEDUGLUTIDE [Suspect]
     Active Substance: TEDUGLUTIDE
     Dosage: 2.6 MILLIGRAM, 4/WEEK
     Dates: start: 20151027, end: 20190227
  4. TEDUGLUTIDE [Suspect]
     Active Substance: TEDUGLUTIDE
     Dosage: 2.6 MILLIGRAM, QD
     Dates: start: 20190227, end: 20190529
  5. TEDUGLUTIDE [Suspect]
     Active Substance: TEDUGLUTIDE
     Dosage: 2.6 MILLIGRAM, 4/WEEK
     Dates: start: 20190529
  6. ONDANSETRON [Concomitant]
     Active Substance: ONDANSETRON
     Indication: Nausea
     Dosage: UNK
  7. SELENIUM [Concomitant]
     Active Substance: SELENIUM
     Indication: Supplementation therapy
     Dosage: UNK UNK, QD
     Dates: start: 20230613

REACTIONS (3)
  - Bacteraemia [Recovered/Resolved]
  - Pyrexia [Recovered/Resolved]
  - Genito-pelvic pain/penetration disorder [Recovered/Resolved]

NARRATIVE: CASE EVENT DATE: 20240715
